FAERS Safety Report 8550279 (Version 4)
Quarter: 2012Q4

REPORT INFORMATION
  Report Type: 
  Country: CA (occurrence: CA)
  Receive Date: 20120507
  Receipt Date: 20120927
  Transmission Date: 20130627
  Serious: Yes (Hospitalization, Other)
  Sender: FDA-Public Use
  Company Number: CA-ROCHE-1065443

PATIENT
  Age: 54 Year
  Sex: Female

DRUGS (2)
  1. XOLAIR [Suspect]
     Indication: ASTHMA
     Route: 058
     Dates: start: 20100624
  2. PREDNISONE [Concomitant]

REACTIONS (15)
  - Pneumonia [Recovered/Resolved]
  - Sepsis [Unknown]
  - Loss of consciousness [Unknown]
  - Lower respiratory tract infection [Unknown]
  - Influenza [Unknown]
  - Oropharyngeal pain [Unknown]
  - Nasopharyngitis [Unknown]
  - Asthma [Unknown]
  - Cough [Recovered/Resolved]
  - Respiratory failure [Recovered/Resolved]
  - Bedridden [Unknown]
  - Muscular dystrophy [Unknown]
  - Fatigue [Not Recovered/Not Resolved]
  - Sputum discoloured [Recovered/Resolved]
  - Pyrexia [Recovered/Resolved]
